FAERS Safety Report 5951701-5 (Version None)
Quarter: 2008Q4

REPORT INFORMATION
  Report Type: 
  Country: None (occurrence: None)
  Receive Date: 20081022
  Receipt Date: 20080627
  Transmission Date: 20090506
  Serious: No
  Sender: FDA-Public Use
  Company Number: SPV1-2008-01408

PATIENT
  Age: 7 Year
  Sex: Male
  Weight: 26.8 kg

DRUGS (3)
  1. VYVANSE [Suspect]
     Indication: ATTENTION DEFICIT/HYPERACTIVITY DISORDER
     Dosage: 30 MG, 1X/DAY:QD, ORAL
     Route: 048
     Dates: start: 20080627
  2. ZYRTEC [Concomitant]
  3. BENADRYL [Concomitant]

REACTIONS (1)
  - CRYING [None]
